FAERS Safety Report 10072132 (Version 2)
Quarter: 2014Q2

REPORT INFORMATION
  Report Type: Spontaneous
  Country: ES (occurrence: ES)
  Receive Date: 20140411
  Receipt Date: 20140411
  Transmission Date: 20141212
  Serious: Yes (Other)
  Sender: FDA-Public Use
  Company Number: ES-009507513-1312ESP000839

PATIENT
  Age: 80 Year
  Sex: Male

DRUGS (10)
  1. SITAGLIPTIN PHOSPHATE [Suspect]
     Indication: DIABETES MELLITUS MANAGEMENT
     Dosage: UNK
     Route: 048
  2. SITAGLIPTIN PHOSPHATE [Interacting]
     Indication: DIABETES MELLITUS
  3. ATORVASTATIN [Interacting]
     Indication: CEREBROVASCULAR ACCIDENT
     Dosage: 40 MG/DAY
  4. ATORVASTATIN [Interacting]
     Dosage: 80 MG /DAY
  5. ATORVASTATIN [Interacting]
     Dosage: 40 MG/DAY
  6. METFORMIN [Concomitant]
     Indication: DIABETES MELLITUS
  7. FUROSEMIDE [Concomitant]
     Dosage: 40 MG, QD
     Route: 048
  8. MANIDIPINE HYDROCHLORIDE [Concomitant]
     Dosage: 10 MG, QD
  9. FAMOTIDINE [Concomitant]
     Dosage: 20 MG, QD
     Route: 048
  10. ZOLPIDEM TARTRATE [Concomitant]
     Dosage: 10 MG, NOCTE
     Route: 048

REACTIONS (4)
  - Rhabdomyolysis [Recovering/Resolving]
  - Renal failure acute [Recovering/Resolving]
  - Hypomagnesaemia [Recovering/Resolving]
  - Drug interaction [Unknown]
